FAERS Safety Report 8876572 (Version 2)
Quarter: 2013Q2

REPORT INFORMATION
  Report Type: Spontaneous
  Country: US (occurrence: None)
  Receive Date: 20120426
  Receipt Date: 20120703
  Transmission Date: 20140414
  Serious: No
  Sender: FDA-Public Use
  Company Number: PHEH2012US004041

PATIENT
  Age: 56 Year
  Sex: Female
  Weight: 59 kg

DRUGS (14)
  1. GILENYA [Suspect]
     Route: 048
  2. FOSAMAX (ALENDRONATE SODIUM) [Concomitant]
  3. PREMARIN VAGINAL CREAM (ESTROGENS CONJUGATED) [Concomitant]
  4. NASONEX (MOMETASONE FUROATE) [Concomitant]
  5. BACLOFEN [Concomitant]
  6. PREVACID (LANSOPRAZOLE) [Concomitant]
  7. LEXAPRO (ESCITALOPRAM OXALATE) [Concomitant]
  8. MIRAPEX (PRAMIPEXOLE DIHYDROCHLORIDE) [Concomitant]
  9. VITAMIN C [Concomitant]
  10. IRON [Concomitant]
  11. VESICARE (SOLIFENACIN) [Concomitant]
  12. MULTIVITAMINS (ASCORBIC ACID, ERGOCALCIFEROL, FOLIC ACID, NICOTINAMIDE, PANTHENOL, RETINOL, RIBOFLAVIN, THIAMINE HYDROCHLORIDE) [Concomitant]
  13. POTASSIUM [Concomitant]
  14. VITAMIN D (ERGOCALCIFEROL) [Concomitant]

REACTIONS (2)
  - Somnolence [None]
  - Paraesthesia [None]
